FAERS Safety Report 5006605-1 (Version None)
Quarter: 2006Q2

REPORT INFORMATION
  Report Type: 
  Country: None (occurrence: None)
  Receive Date: 20060519
  Receipt Date: 20060214
  Transmission Date: 20061013
  Serious: Yes (Hospitalization)
  Sender: FDA-Public Use
  Company Number: JP-JPN-A200600607

PATIENT
  Age: 9 Year
  Sex: Female
  Weight: 38.5 kg

DRUGS (1)
  1. RELENZA [Suspect]
     Indication: INFLUENZA
     Route: 055
     Dates: start: 20060201

REACTIONS (7)
  - DIZZINESS [None]
  - GAIT DISTURBANCE [None]
  - MALAISE [None]
  - NYSTAGMUS [None]
  - PYREXIA [None]
  - VESTIBULAR NEURONITIS [None]
  - VOMITING [None]
